FAERS Safety Report 14686221 (Version 1)
Quarter: 2018Q1

REPORT INFORMATION
  Report Type: Spontaneous
  Country: US (occurrence: US)
  Receive Date: 20180326
  Receipt Date: 20180326
  Transmission Date: 20180509
  Serious: Yes (Other)
  Sender: FDA-Public Use
  Company Number: None

PATIENT
  Age: 53 Year
  Sex: Female

DRUGS (1)
  1. LAMOTROGINE [Suspect]
     Active Substance: LAMOTRIGINE
     Indication: MAJOR DEPRESSION
     Route: 048
     Dates: start: 20180217, end: 20180326

REACTIONS (7)
  - Agitation [None]
  - Product substitution issue [None]
  - Anxiety [None]
  - Anhedonia [None]
  - Anger [None]
  - Suicidal ideation [None]
  - Irritability [None]

NARRATIVE: CASE EVENT DATE: 20180217
